FAERS Safety Report 11380030 (Version 2)
Quarter: 2015Q3

REPORT INFORMATION
  Report Type: Spontaneous
  Country: JP (occurrence: JP)
  Receive Date: 20150814
  Receipt Date: 20150824
  Transmission Date: 20151125
  Serious: Yes (Other)
  Sender: FDA-Public Use
  Company Number: PHJP2015JP013888

PATIENT
  Sex: Female

DRUGS (4)
  1. PAMIDRONATE [Suspect]
     Active Substance: PAMIDRONATE DISODIUM
     Indication: METASTASES TO SPINE
     Dosage: UNK
     Route: 065
     Dates: start: 200412, end: 200610
  2. INCADRONIC ACID [Suspect]
     Active Substance: INCADRONIC ACID
     Indication: METASTASES TO SPINE
     Dosage: UNK
     Route: 065
     Dates: end: 200412
  3. DENOSUMAB [Suspect]
     Active Substance: DENOSUMAB
     Indication: METASTASES TO SPINE
     Route: 065
  4. ZOLEDRONATE [Suspect]
     Active Substance: ZOLEDRONIC ACID
     Indication: METASTASES TO SPINE
     Dosage: UNK
     Route: 065
     Dates: start: 200610, end: 201312

REACTIONS (2)
  - Atypical fracture [Unknown]
  - Fall [Unknown]

NARRATIVE: CASE EVENT DATE: 201409
